FAERS Safety Report 18524540 (Version 1)
Quarter: 2020Q4

REPORT INFORMATION
  Report Type: Spontaneous
  Country: US (occurrence: US)
  Receive Date: 20201120
  Receipt Date: 20201120
  Transmission Date: 20210114
  Serious: No
  Sender: FDA-Public Use
  Company Number: US-LUPIN PHARMACEUTICALS INC.-2020-06556

PATIENT
  Sex: Female

DRUGS (1)
  1. LEVOTHYROXINE SODIUM TABLETS USP, 112 MCG [Suspect]
     Active Substance: LEVOTHYROXINE SODIUM
     Indication: PRODUCT USED FOR UNKNOWN INDICATION
     Dosage: UNK
     Route: 065

REACTIONS (3)
  - Product solubility abnormal [Unknown]
  - Poor quality product administered [Unknown]
  - No adverse event [Unknown]
